FAERS Safety Report 18894220 (Version 1)
Quarter: 2021Q1

REPORT INFORMATION
  Report Type: Spontaneous
  Country: RO (occurrence: RO)
  Receive Date: 20210215
  Receipt Date: 20210215
  Transmission Date: 20210420
  Serious: Yes (Hospitalization, Other)
  Sender: FDA-Public Use
  Company Number: RO-VISTAPHARM, INC.-VER202102-000702

PATIENT
  Age: 22 Year
  Sex: Male

DRUGS (3)
  1. HYDROCODONE AND ACETAMINOPHEN [Suspect]
     Active Substance: ACETAMINOPHEN\HYDROCODONE
     Indication: CELL DEATH
     Dosage: 10 G
  2. LIQUID LAUNDRY DETERGENT [Suspect]
     Active Substance: UNSPECIFIED INGREDIENT
     Indication: CELL DEATH
     Dosage: 50 ML (OVER A PERIOD OF LESS THAN 1 HOUR)
  3. ANTICARCEL [ALPHA.?TOCOPHEROL\MAGNESIUM\POTASSIUM\PYRIDOXINE] [Suspect]
     Active Substance: .ALPHA.-TOCOPHEROL\MAGNESIUM\POTASSIUM\PYRIDOXINE
     Indication: CELL DEATH
     Dosage: UNKNOWN

REACTIONS (5)
  - Acute kidney injury [Recovered/Resolved]
  - Abdominal pain [Unknown]
  - Overdose [Unknown]
  - Vomiting [Unknown]
  - Splenomegaly [Unknown]
